FAERS Safety Report 6717556-6 (Version None)
Quarter: 2010Q2

REPORT INFORMATION
  Report Type: 
  Country: None (occurrence: None)
  Receive Date: 20100510
  Receipt Date: 20100430
  Transmission Date: 20101027
  Serious: Yes (Hospitalization)
  Sender: FDA-Public Use
  Company Number: JP-ASTRAZENECA-2010SE20779

PATIENT
  Age: 81 Year
  Sex: Male
  Weight: 72 kg

DRUGS (9)
  1. CANDESARTAN CILEXETIL [Suspect]
     Indication: CARDIAC FAILURE
     Route: 048
     Dates: start: 20070327
  2. EPLERENONE [Suspect]
     Indication: CARDIAC FAILURE CHRONIC
     Route: 048
     Dates: start: 20070424
  3. ASPIRIN [Concomitant]
     Route: 048
     Dates: start: 19860101
  4. PRAVASTATIN [Concomitant]
     Route: 048
     Dates: start: 20000101
  5. ISODUR [Concomitant]
     Route: 048
     Dates: start: 20000101
  6. OMEPRAZOLE [Concomitant]
     Route: 048
     Dates: start: 20030101
  7. ARTROX [Concomitant]
     Route: 048
     Dates: start: 20060101
  8. METOPROLOL [Concomitant]
     Route: 048
     Dates: start: 20070327
  9. PERSANTINE [Concomitant]
     Route: 048
     Dates: start: 20090113

REACTIONS (1)
  - SYNCOPE [None]
